FAERS Safety Report 16697548 (Version 2)
Quarter: 2021Q4

REPORT INFORMATION
  Report Type: Report from Study
  Country: US (occurrence: US)
  Receive Date: 20190813
  Receipt Date: 20211215
  Transmission Date: 20220304
  Serious: Yes (Hospitalization)
  Sender: FDA-Public Use
  Company Number: PHEH2019US033495

PATIENT
  Age: 36 Year
  Sex: Female

DRUGS (2)
  1. TREPROSTINIL [Suspect]
     Active Substance: TREPROSTINIL
     Indication: Pulmonary arterial hypertension
     Dosage: UNK (160 NG/KG/MIN, CONTINUOUSLY)
     Route: 042
     Dates: start: 20180516
  2. TREPROSTINIL [Suspect]
     Active Substance: TREPROSTINIL
     Dosage: 178 NG/KG/MIN, CONTINUOUSLY
     Route: 042
     Dates: start: 201906

REACTIONS (2)
  - Device dislocation [Unknown]
  - Device leakage [Unknown]

NARRATIVE: CASE EVENT DATE: 20190804
